FAERS Safety Report 5380281-0 (Version None)
Quarter: 2007Q3

REPORT INFORMATION
  Report Type: 
  Country: None (occurrence: None)
  Receive Date: 20070706
  Receipt Date: 20070626
  Transmission Date: 20080115
  Serious: Yes (Hospitalization, Other)
  Sender: FDA-Public Use
  Company Number: FR-AMGEN-US227542

PATIENT
  Sex: Female
  Weight: 65 kg

DRUGS (9)
  1. ENBREL [Suspect]
     Indication: RHEUMATOID ARTHRITIS
     Dosage: UNKNOWN
     Route: 058
     Dates: start: 20060301, end: 20070415
  2. PREDNISONE TAB [Suspect]
     Indication: RHEUMATOID ARTHRITIS
     Dosage: 10 MG; FREQUENCY UNSPECIFIED
     Route: 048
  3. HEPARIN [Suspect]
     Dosage: UNKNOWN
     Route: 058
  4. INSULATARD [Suspect]
     Indication: TYPE 1 DIABETES MELLITUS
     Route: 058
  5. METHOTREXATE [Suspect]
     Indication: RHEUMATOID ARTHRITIS
     Dosage: UNKNOWN
     Dates: start: 20060301, end: 20070401
  6. ARAVA [Suspect]
     Indication: RHEUMATOID ARTHRITIS
     Dosage: 20 MG; FREQUENCY UNSPECIFIED
     Route: 048
     Dates: start: 20070401, end: 20070501
  7. ALDACTONE [Concomitant]
     Indication: HYPERTENSION
     Dosage: 75 MG; FREQUENCY UNSPECIFIED
     Route: 048
  8. CONTRAMAL [Concomitant]
     Indication: PAIN
     Dosage: 50 MG; FREQUENCY UNSPECIFIED
     Route: 048
  9. TENSTATEN [Concomitant]
     Indication: HYPERTENSION
     Dosage: 50 MG; FREQUENCY UNSPECIFIED
     Route: 048

REACTIONS (8)
  - ENTEROBACTER INFECTION [None]
  - GANGRENE [None]
  - GASTROINTESTINAL DISORDER [None]
  - GENERAL PHYSICAL HEALTH DETERIORATION [None]
  - GROIN ABSCESS [None]
  - INTERVERTEBRAL DISC PROTRUSION [None]
  - SCIATICA [None]
  - WEIGHT DECREASED [None]
